FAERS Safety Report 5131632-3 (Version None)
Quarter: 2006Q4

REPORT INFORMATION
  Report Type: 
  Country: None (occurrence: None)
  Receive Date: 20061016
  Receipt Date: 20060929
  Transmission Date: 20070319
  Serious: Yes (Hospitalization)
  Sender: FDA-Public Use
  Company Number: JP200610000012

PATIENT
  Age: 73 Year
  Sex: Male
  Weight: 64.5 kg

DRUGS (9)
  1. LISPRO [Suspect]
     Indication: DIABETES MELLITUS NON-INSULIN-DEPENDENT
     Dosage: 9 LU, 2/D
     Route: 058
     Dates: start: 20051027
  2. HUMALOG [Concomitant]
  3. GLYBURIDE [Concomitant]
  4. METFORMIN HYDROCHLORIDE [Concomitant]
  5. PRAVASTATIN [Concomitant]
  6. NICHISATE (TICLOPIDINE HYDROCHLORIDE) [Concomitant]
  7. SEPAMIT -SLOW RELEASE        (NIFEDIPINE) [Concomitant]
  8. NU-LOTAN   (LOSARTAN HYDROCHLORIDE) [Concomitant]
  9. LOPERAMIDE HCL [Concomitant]

REACTIONS (4)
  - BRAIN STEM INFARCTION [None]
  - DYSLALIA [None]
  - GAIT DISTURBANCE [None]
  - MONOPARESIS [None]
